FAERS Safety Report 18632325 (Version 1)
Quarter: 2020Q4

REPORT INFORMATION
  Report Type: Spontaneous
  Country: SE (occurrence: SE)
  Receive Date: 20201218
  Receipt Date: 20201218
  Transmission Date: 20210114
  Serious: Yes (Death)
  Sender: FDA-Public Use
  Company Number: SE-TEVA-2020-SE-1859029

PATIENT
  Age: 60 Year
  Sex: Male

DRUGS (15)
  1. PLAVIX [Concomitant]
     Active Substance: CLOPIDOGREL BISULFATE
  2. OXYCONTIN [Concomitant]
     Active Substance: OXYCODONE HYDROCHLORIDE
     Dosage: VB
  3. BISOPROLOL [Concomitant]
     Active Substance: BISOPROLOL
     Dosage: 10 MG
  4. ATORVASTATIN [Suspect]
     Active Substance: ATORVASTATIN
     Dosage: 20 MG
     Dates: start: 20200423, end: 20200911
  5. CANDESARTAN CILEXETIL. [Concomitant]
     Active Substance: CANDESARTAN CILEXETIL
     Dosage: 8 MG
  6. ALVEDON FORTE [Concomitant]
     Active Substance: ACETAMINOPHEN
     Dosage: VB
  7. URSOFALK [Concomitant]
     Active Substance: URSODIOL
  8. PENTASA [Concomitant]
     Active Substance: MESALAMINE
     Dosage: 2 GRAM
  9. OZEMPIC [Concomitant]
     Active Substance: SEMAGLUTIDE
     Dosage: 1 MG
  10. ZOLPIDEM [Concomitant]
     Active Substance: ZOLPIDEM TARTRATE
     Dosage: VB
  11. NOVORAPID [Concomitant]
     Active Substance: INSULIN ASPART
     Dosage: 10+10 E
  12. ABASAGLAR [Concomitant]
     Active Substance: INSULIN GLARGINE
     Dosage: 20+20 E
  13. TROMBYL 75 MG TABLETT [Concomitant]
     Active Substance: ASPIRIN
     Dosage: 75 MG
  14. OMEPRAZOLE. [Concomitant]
     Active Substance: OMEPRAZOLE
  15. FURIX 40 MG TABLETT [Concomitant]
     Dosage: 80 MG

REACTIONS (1)
  - Necrotising myositis [Fatal]

NARRATIVE: CASE EVENT DATE: 20200911
